FAERS Safety Report 6069262-1 (Version None)
Quarter: 2009Q1

REPORT INFORMATION
  Report Type: 
  Country: None (occurrence: None)
  Receive Date: 20090206
  Receipt Date: 20090204
  Transmission Date: 20090719
  Serious: Yes (Death)
  Sender: FDA-Public Use
  Company Number: PHHY2009MX04165

PATIENT
  Age: 75 Year
  Sex: Female

DRUGS (1)
  1. ZELMAC [Suspect]
     Dosage: 12 MG/DAY (2 TABLETS/DAY)
     Route: 048
     Dates: start: 20080101, end: 20080801

REACTIONS (1)
  - RESPIRATORY ARREST [None]
